FAERS Safety Report 14625573 (Version 1)
Quarter: 2018Q1

REPORT INFORMATION
  Report Type: Report from Study
  Country: None (occurrence: BE)
  Receive Date: 20180312
  Receipt Date: 20180312
  Transmission Date: 20180509
  Serious: Yes (Other)
  Sender: FDA-Public Use
  Company Number: BE-ABBVIE-18K-013-2279436-00

PATIENT
  Sex: Female

DRUGS (1)
  1. HUMIRA [Suspect]
     Active Substance: ADALIMUMAB
     Indication: UVEITIS
     Route: 058
     Dates: start: 201712

REACTIONS (4)
  - Cystitis noninfective [Recovered/Resolved]
  - Eye pruritus [Not Recovered/Not Resolved]
  - Oral disorder [Recovered/Resolved]
  - Night blindness [Recovering/Resolving]
